FAERS Safety Report 6760761-3 (Version None)
Quarter: 2010Q2

REPORT INFORMATION
  Report Type: 
  Country: None (occurrence: None)
  Receive Date: 20100608
  Receipt Date: 20100527
  Transmission Date: 20101027
  Serious: Yes (Other)
  Sender: FDA-Public Use
  Company Number: US-PFIZER INC-2010036187

PATIENT
  Sex: Female
  Weight: 74.83 kg

DRUGS (9)
  1. CHANTIX [Suspect]
     Indication: SMOKING CESSATION THERAPY
     Dosage: 0.5 MG, 1X/DAY
     Route: 048
     Dates: start: 20100301, end: 20100301
  2. CHANTIX [Suspect]
     Dosage: 1 MG, 2X/DAY
     Route: 048
     Dates: start: 20100301, end: 20100319
  3. CORTISONE [Suspect]
     Dosage: UNK MG, UNK
  4. PREDNISONE [Suspect]
     Indication: RASH GENERALISED
     Dosage: 40 MG, UNK
     Route: 048
     Dates: start: 20100318
  5. SULFASALAZINE [Suspect]
     Indication: RHEUMATOID ARTHRITIS
  6. BENADRYL [Suspect]
     Indication: RASH GENERALISED
     Dosage: 1 MG, 2X/DAY
     Route: 048
     Dates: start: 20100320
  7. TYLENOL [Suspect]
     Dosage: UNK MG, UNK
     Route: 048
  8. HYDROXYCHLOROQUINE [Suspect]
     Indication: RHEUMATOID ARTHRITIS
  9. HYDROCHLOROTHIAZIDE [Concomitant]
     Indication: HYPERTENSION
     Dosage: UNK

REACTIONS (2)
  - PHARYNGEAL OEDEMA [None]
  - RASH PRURITIC [None]
